FAERS Safety Report 16317144 (Version 4)
Quarter: 2019Q3

REPORT INFORMATION
  Report Type: Spontaneous
  Country: US (occurrence: US)
  Receive Date: 20190515
  Receipt Date: 20190820
  Transmission Date: 20191004
  Serious: Yes (Other)
  Sender: FDA-Public Use
  Company Number: US-SA-2019SA133072

PATIENT
  Age: 38 Year
  Sex: Female

DRUGS (1)
  1. AUBAGIO [Suspect]
     Active Substance: TERIFLUNOMIDE
     Indication: MULTIPLE SCLEROSIS
     Dosage: 14 MG, QD
     Route: 048
     Dates: start: 201904, end: 20190720

REACTIONS (6)
  - Hypoaesthesia [Unknown]
  - Increased appetite [Unknown]
  - Product dose omission [Unknown]
  - Diarrhoea haemorrhagic [Unknown]
  - Multiple sclerosis [Unknown]
  - Alopecia [Unknown]
